FAERS Safety Report 7000717-9 (Version None)
Quarter: 2010Q3

REPORT INFORMATION
  Report Type: 
  Country: None (occurrence: None)
  Receive Date: 20100920
  Receipt Date: 20100719
  Transmission Date: 20110219
  Serious: No
  Sender: FDA-Public Use
  Company Number: US-ASTRAZENECA-2010SE28420

PATIENT
  Age: 565 Month
  Sex: Female
  Weight: 88 kg

DRUGS (2)
  1. SEROQUEL [Suspect]
     Indication: BIPOLAR DISORDER
     Route: 048
     Dates: start: 20050617, end: 20100528
  2. CELEXA [Concomitant]
     Indication: ANXIETY
     Route: 048

REACTIONS (7)
  - CHILLS [None]
  - CRYING [None]
  - DRUG DOSE OMISSION [None]
  - INSOMNIA [None]
  - MOOD ALTERED [None]
  - TREMOR [None]
  - WITHDRAWAL SYNDROME [None]
